FAERS Safety Report 22357148 (Version 1)
Quarter: 2023Q2

REPORT INFORMATION
  Report Type: Other
  Country: GB (occurrence: GB)
  Receive Date: 20230524
  Receipt Date: 20230524
  Transmission Date: 20230722
  Serious: Yes (Other)
  Sender: FDA-Public Use
  Company Number: GB-CELLTRION INC.-2023GB010669

PATIENT

DRUGS (5)
  1. INFLIXIMAB [Suspect]
     Active Substance: INFLIXIMAB
     Indication: Crohn^s disease
     Dosage: ADDITIONAL INFO: ROUTE:UNKNOWN
     Route: 065
  2. ADALIMUMAB [Suspect]
     Active Substance: ADALIMUMAB
     Indication: Crohn^s disease
     Dosage: SINGLE DOSE PEN
  3. USTEKINUMAB [Suspect]
     Active Substance: USTEKINUMAB
     Indication: Crohn^s disease
     Dosage: ADDITIONAL INFO: ROUTE:UNKNOWN
     Route: 065
  4. VEDOLIZUMAB [Suspect]
     Active Substance: VEDOLIZUMAB
     Indication: Crohn^s disease
     Dosage: ADDITIONAL INFO: ROUTE:UNKNOWN
     Route: 065
  5. AZATHIOPRINE [Suspect]
     Active Substance: AZATHIOPRINE
     Indication: Crohn^s disease
     Dosage: ADDITIONAL INFO: ROUTE:UNKNOWN
     Route: 065

REACTIONS (7)
  - Therapeutic product effect decreased [Unknown]
  - Drug specific antibody present [Unknown]
  - Faecal calprotectin increased [Unknown]
  - Therapeutic product effect incomplete [Unknown]
  - Drug level decreased [Unknown]
  - Therapeutic product effect decreased [Unknown]
  - Gastrointestinal disorder [Unknown]
